FAERS Safety Report 9664626 (Version 1)
Quarter: 2013Q4

REPORT INFORMATION
  Report Type: Spontaneous
  Country: TR (occurrence: None)
  Receive Date: 20131031
  Receipt Date: 20131031
  Transmission Date: 20140711
  Serious: Yes (Other)
  Sender: FDA-Public Use
  Company Number: FK201304761

PATIENT
  Age: 34 Year
  Sex: Female

DRUGS (5)
  1. FUROSEMIDE [Suspect]
     Indication: PRODUCT USED FOR UNKNOWN INDICATION
     Dosage: (NOT OTHERWISE SPECIFIED)
     Route: 042
  2. NITR0 (GLYCERYL TRINITRATE) [Concomitant]
  3. PLASMA, FRESH FROZEN [Concomitant]
  4. RED BLOOD CELLS (RED BLOOD CELLS) [Concomitant]
  5. WARFARIN (WARFARIN) [Concomitant]

REACTIONS (5)
  - Torsade de pointes [None]
  - Ventricular fibrillation [None]
  - Long QT syndrome congenital [None]
  - Hypokalaemia [None]
  - Blood calcium decreased [None]
